FAERS Safety Report 16415488 (Version 2)
Quarter: 2019Q3

REPORT INFORMATION
  Report Type: Spontaneous
  Country: US (occurrence: US)
  Receive Date: 20190611
  Receipt Date: 20190703
  Transmission Date: 20191004
  Serious: No
  Sender: FDA-Public Use
  Company Number: US-SA-2019SA153429

PATIENT
  Age: 66 Year
  Sex: Female
  Weight: 113 kg

DRUGS (1)
  1. LANTUS SOLOSTAR [Suspect]
     Active Substance: INSULIN GLARGINE
     Indication: TYPE 2 DIABETES MELLITUS
     Dosage: 110 U, BID
     Route: 065

REACTIONS (2)
  - Product packaging quantity issue [Unknown]
  - Inappropriate schedule of product administration [Unknown]
